FAERS Safety Report 11923994 (Version 2)
Quarter: 2016Q1

REPORT INFORMATION
  Report Type: Spontaneous
  Country: IN (occurrence: IN)
  Receive Date: 20160118
  Receipt Date: 20160127
  Transmission Date: 20160526
  Serious: Yes (Hospitalization, Other)
  Sender: FDA-Public Use
  Company Number: IN-SA-2016SA005427

PATIENT
  Age: 36 Year
  Sex: Male

DRUGS (2)
  1. CEFOTAXIME SODIUM [Suspect]
     Active Substance: CEFOTAXIME SODIUM
     Indication: ANTIBIOTIC THERAPY
     Dosage: AS INFUSION
     Route: 042
  2. BETAMETHASONE. [Concomitant]
     Active Substance: BETAMETHASONE

REACTIONS (18)
  - Anaphylactic reaction [Recovering/Resolving]
  - Hyperhidrosis [Recovering/Resolving]
  - Swelling face [Recovering/Resolving]
  - Arteriospasm coronary [Recovered/Resolved]
  - Tachypnoea [Recovering/Resolving]
  - Chest pain [Recovering/Resolving]
  - Bundle branch block right [Recovering/Resolving]
  - Troponin T increased [Recovering/Resolving]
  - Electrocardiogram ST segment elevation [Recovering/Resolving]
  - Headache [Recovering/Resolving]
  - Acute coronary syndrome [Recovering/Resolving]
  - Kounis syndrome [Recovering/Resolving]
  - Electrocardiogram ST segment depression [Recovering/Resolving]
  - Eye swelling [Recovering/Resolving]
  - Hypotension [Recovering/Resolving]
  - Hypocapnia [Recovering/Resolving]
  - Pruritus generalised [Recovering/Resolving]
  - Tachycardia [Recovering/Resolving]
